FAERS Safety Report 7721018-7 (Version None)
Quarter: 2011Q3

REPORT INFORMATION
  Report Type: 
  Country: None (occurrence: None)
  Receive Date: 20110831
  Receipt Date: 20110112
  Transmission Date: 20111222
  Serious: No
  Sender: FDA-Public Use
  Company Number: US-BAYER-2011-004462

PATIENT
  Age: 44 Year
  Sex: Female

DRUGS (1)
  1. MIRENA [Suspect]
     Indication: METRORRHAGIA
     Dosage: 20 MCG/24HR, UNK
     Route: 015
     Dates: start: 20101213, end: 20110110

REACTIONS (5)
  - PAIN [None]
  - VAGINAL HAEMORRHAGE [None]
  - DYSMENORRHOEA [None]
  - DEPRESSION [None]
  - AFFECT LABILITY [None]
